FAERS Safety Report 19481781 (Version 1)
Quarter: 2021Q3

REPORT INFORMATION
  Report Type: Spontaneous
  Country: US (occurrence: US)
  Receive Date: 20210701
  Receipt Date: 20210701
  Transmission Date: 20211014
  Serious: Yes (Other)
  Sender: FDA-Public Use
  Company Number: US-BAYER-2021-167430

PATIENT
  Age: 23 Month
  Sex: Male

DRUGS (1)
  1. ASPIRIN (CARDIO) [Suspect]
     Active Substance: ASPIRIN

REACTIONS (3)
  - Haematuria [None]
  - Product use issue [None]
  - Off label use [None]
